FAERS Safety Report 10225179 (Version 2)
Quarter: 2015Q1

REPORT INFORMATION
  Report Type: Spontaneous
  Country: BR (occurrence: BR)
  Receive Date: 20140609
  Receipt Date: 20150206
  Transmission Date: 20150720
  Serious: Yes (Other)
  Sender: FDA-Public Use
  Company Number: BR-ABBVIE-14P-020-1245355-00

PATIENT
  Sex: Female
  Weight: 72 kg

DRUGS (10)
  1. MOTILIUM [Concomitant]
     Active Substance: DOMPERIDONE
     Indication: DYSPEPSIA
     Dosage: 1 TABLET BEFORE LUNCH AND BEFORE DINNER; DAILY DOSE: 20 MILLIGRAM
  2. MENELAT [Concomitant]
     Active Substance: MIRTAZAPINE
     Indication: ANTIDEPRESSANT THERAPY
     Dosage: 30MIN AFTER DINNER
  3. SYNTHROID [Suspect]
     Active Substance: LEVOTHYROXINE SODIUM
     Indication: THYROIDECTOMY
     Dosage: 30MIN BEFORE BREAKFAST;DAILY DOSE: 100 MICROGRAM
     Route: 048
     Dates: start: 200907
  4. ATENOLOL. [Concomitant]
     Active Substance: ATENOLOL
     Indication: BLOOD PRESSURE
  5. ATENOLOL. [Concomitant]
     Active Substance: ATENOLOL
     Indication: ARRHYTHMIA
     Dosage: AFTER BREAKFAST; 25 MILLIGRAM
  6. NATRILIX [Concomitant]
     Active Substance: INDAPAMIDE
     Indication: BLOOD PRESSURE
     Dosage: AFTER BREAKFAST; DAILY DOSE: 1.5 MILLIGRAM
  7. CITALOR [Concomitant]
     Active Substance: ATORVASTATIN
     Indication: BLOOD CHOLESTEROL
     Dosage: AFTER DINNER
  8. ALPRAZOLAM. [Concomitant]
     Active Substance: ALPRAZOLAM
     Indication: ANXIETY
  9. OMEPRAZOLE. [Concomitant]
     Active Substance: OMEPRAZOLE
     Indication: PROPHYLAXIS AGAINST GASTROINTESTINAL ULCER
     Dosage: BEFORE BREAKFAST; DAILY DOSE: 100 MILLIGRAM
  10. ALPHA-D-GALACTOSIDASE [Concomitant]
     Indication: PRODUCT USED FOR UNKNOWN INDICATION
     Dosage: ON TOP OF MEALS
     Route: 048

REACTIONS (22)
  - Ovarian cyst [Recovering/Resolving]
  - Hypertension [Recovering/Resolving]
  - Lipoma [Recovering/Resolving]
  - Fibromyalgia [Recovering/Resolving]
  - Osteoarthritis [Not Recovered/Not Resolved]
  - Pain [Recovering/Resolving]
  - Dyspepsia [Recovering/Resolving]
  - Synovial cyst [Unknown]
  - Abdominal wall cyst [Recovering/Resolving]
  - Arthritis [Not Recovered/Not Resolved]
  - Tendonitis [Recovering/Resolving]
  - Gait disturbance [Recovering/Resolving]
  - Pulmonary mass [Unknown]
  - Hypoaesthesia [Recovering/Resolving]
  - Breast mass [Unknown]
  - Lactose intolerance [Recovering/Resolving]
  - Nodule [Unknown]
  - Uterine cyst [Recovering/Resolving]
  - Muscle twitching [Recovering/Resolving]
  - Pancreatic disorder [Unknown]
  - Granuloma [Unknown]
  - Weight decreased [Recovering/Resolving]

NARRATIVE: CASE EVENT DATE: 2009
